FAERS Safety Report 23676960 (Version 1)
Quarter: 2024Q1

REPORT INFORMATION
  Report Type: Spontaneous
  Country: GB (occurrence: GB)
  Receive Date: 20240327
  Receipt Date: 20240327
  Transmission Date: 20240410
  Serious: Yes (Other)
  Sender: FDA-Public Use
  Company Number: GB-PFIZER INC-2020107601

PATIENT
  Age: 51 Year
  Sex: Female

DRUGS (5)
  1. LYRICA [Suspect]
     Active Substance: PREGABALIN
     Indication: Anxiety
     Dosage: UNK (DAILY DOSE WAS CUT BACK/WEANED OFF FOR NINE MONTHS)
     Route: 065
  2. LYRICA [Suspect]
     Active Substance: PREGABALIN
     Indication: Insomnia
     Dosage: 250 MILLIGRAM, QD (DAILY)
     Route: 065
     Dates: start: 201906
  3. LYRICA [Suspect]
     Active Substance: PREGABALIN
     Indication: Neuralgia
     Dosage: 48 MILLIGRAM, QD (DAILY)
     Route: 065
  4. LYRICA [Suspect]
     Active Substance: PREGABALIN
     Dosage: UNK
     Route: 065
  5. LYRICA [Suspect]
     Active Substance: PREGABALIN
     Indication: Anxiety
     Dosage: 0.2 MILLILITER
     Route: 048

REACTIONS (25)
  - Drug dependence [Unknown]
  - Feeling hot [Unknown]
  - Illness [Unknown]
  - Product use in unapproved indication [Unknown]
  - Feeling jittery [Unknown]
  - Retching [Unknown]
  - Intentional product use issue [Unknown]
  - Wrong technique in product usage process [Unknown]
  - Withdrawal syndrome [Unknown]
  - Nausea [Unknown]
  - Dizziness postural [Unknown]
  - Malaise [Unknown]
  - Feeling abnormal [Unknown]
  - Hyperhidrosis [Unknown]
  - Dizziness [Unknown]
  - Headache [Unknown]
  - Weight increased [Unknown]
  - Paraesthesia [Unknown]
  - Diarrhoea [Unknown]
  - Euphoric mood [Unknown]
  - Disturbance in attention [Unknown]
  - Balance disorder [Unknown]
  - Anxiety [Unknown]
  - Pain [Unknown]
  - Off label use [Unknown]
